FAERS Safety Report 25481405 (Version 1)
Quarter: 2025Q2

REPORT INFORMATION
  Report Type: Report from Study
  Country: US (occurrence: US)
  Receive Date: 20250626
  Receipt Date: 20250626
  Transmission Date: 20250716
  Serious: Yes (Other)
  Sender: BAUSCH AND LOMB
  Company Number: US-BAUSCH-BL-2025-007853

PATIENT
  Age: 61 Year
  Sex: Female
  Weight: 106.24 kg

DRUGS (1)
  1. SILIQ [Suspect]
     Active Substance: BRODALUMAB
     Indication: Psoriasis
     Dosage: SILIQ 210 MG/1.5ML SOSY, 210MG/1.5M, INJECT 210MG SUBCUTANEOUSLY AT WEEKS 0,1, AND 2 AS DIRECTED.
     Route: 065
     Dates: start: 202309

REACTIONS (2)
  - Arthropathy [Unknown]
  - Knee arthroplasty [Unknown]
